FAERS Safety Report 19363264 (Version 1)
Quarter: 2021Q2

REPORT INFORMATION
  Report Type: Spontaneous
  Country: CA (occurrence: CA)
  Receive Date: 20210603
  Receipt Date: 20210603
  Transmission Date: 20210717
  Serious: Yes (Hospitalization, Other)
  Sender: FDA-Public Use
  Company Number: CA-AUROBINDO-AUR-APL-2021-022719

PATIENT
  Age: 68 Year
  Sex: Male

DRUGS (1)
  1. AURO?LAMOTRIGINE TABLET [Suspect]
     Active Substance: LAMOTRIGINE
     Indication: EPILEPSY
     Dosage: 75 MILLIGRAM, TWO TIMES A DAY
     Route: 048

REACTIONS (2)
  - Drug reaction with eosinophilia and systemic symptoms [Unknown]
  - Prescribed overdose [Unknown]
